FAERS Safety Report 9742471 (Version 1)
Quarter: 2013Q4

REPORT INFORMATION
  Report Type: Spontaneous
  Country: US (occurrence: US)
  Receive Date: 20131210
  Receipt Date: 20131210
  Transmission Date: 20140711
  Serious: No
  Sender: FDA-Public Use
  Company Number: US-BAYER-2013-149374

PATIENT
  Age: 72 Year
  Sex: Male

DRUGS (9)
  1. LEVITRA [Suspect]
     Indication: ERECTILE DYSFUNCTION
     Dosage: 15 MG, PRN
     Route: 048
     Dates: start: 2004, end: 20131120
  2. CIPRO [Concomitant]
  3. GLYBURIDE [Concomitant]
  4. METFORMIN [Concomitant]
  5. JANUVIA [Concomitant]
  6. B12 [Concomitant]
  7. VITAMIN D [Concomitant]
  8. GARLIC [Concomitant]
  9. PRAVASTATIN [Concomitant]

REACTIONS (1)
  - Blood urine present [Not Recovered/Not Resolved]
